FAERS Safety Report 7327216-9 (Version None)
Quarter: 2011Q1

REPORT INFORMATION
  Report Type: 
  Country: None (occurrence: None)
  Receive Date: 20110302
  Receipt Date: 20110220
  Transmission Date: 20110831
  Serious: Yes (Hospitalization, Other)
  Sender: FDA-Public Use
  Company Number: US-PFIZER INC-2011039487

PATIENT
  Age: 34 Year
  Sex: Female

DRUGS (1)
  1. PRISTIQ [Suspect]
     Dosage: 200 MG, UNK

REACTIONS (3)
  - DEPRESSION [None]
  - DEPRESSION SUICIDAL [None]
  - PARANOIA [None]
